FAERS Safety Report 12174924 (Version 1)
Quarter: 2016Q1

REPORT INFORMATION
  Report Type: Spontaneous
  Country: IN (occurrence: IN)
  Receive Date: 20160314
  Receipt Date: 20160314
  Transmission Date: 20160526
  Serious: Yes (Life-Threatening, Other)
  Sender: FDA-Public Use
  Company Number: IN-PIRAMAL ENTERPRISES LTD-2016-PEL-000661

PATIENT

DRUGS (12)
  1. ISOFLURANE. [Suspect]
     Active Substance: ISOFLURANE
     Indication: MAINTENANCE OF ANAESTHESIA
     Dosage: 1 %, UNK
  2. VECURONIUM [Concomitant]
     Active Substance: VECURONIUM BROMIDE
     Dosage: 0.1 MG/KG, UNK
     Route: 042
  3. GLYCOPYRROLATE                     /00196201/ [Concomitant]
     Active Substance: GLYCOPYRRONIUM
     Indication: PREMEDICATION
     Dosage: 10 ?G/KG, UNK
     Route: 051
  4. NITROUS OXIDE. [Concomitant]
     Active Substance: NITROUS OXIDE
     Indication: MAINTENANCE OF ANAESTHESIA
     Dosage: 0.5 %, UNK
     Route: 065
  5. OXYGEN. [Concomitant]
     Active Substance: OXYGEN
     Indication: MAINTENANCE OF ANAESTHESIA
     Dosage: 100 %, UNK
  6. OXYGEN. [Concomitant]
     Active Substance: OXYGEN
     Dosage: UNK
  7. ONDANSETRON [Concomitant]
     Active Substance: ONDANSETRON
     Indication: PREMEDICATION
     Dosage: 0.1 MG/KG, UNK
     Route: 051
  8. NEOSTIGMINE [Concomitant]
     Active Substance: NEOSTIGMINE
     Indication: NEUROMUSCULAR BLOCKADE REVERSAL
     Dosage: 2.5 MG, UNK
     Route: 042
  9. GLYCOPYRROLATE                     /00196201/ [Concomitant]
     Active Substance: GLYCOPYRRONIUM
     Indication: NEUROMUSCULAR BLOCKADE REVERSAL
     Dosage: 0.5 MG, UNK
     Route: 042
  10. MIDAZOLAM [Concomitant]
     Active Substance: MIDAZOLAM\MIDAZOLAM HYDROCHLORIDE
     Indication: PREMEDICATION
     Dosage: 0.05 MG/KG, UNK
     Route: 051
  11. CRITIFOL (PROPOFOL INJECTION IP 1%) [Suspect]
     Active Substance: PROPOFOL
     Indication: INDUCTION OF ANAESTHESIA
     Dosage: 2 MG/KG, UNK
     Route: 051
  12. FENTANYL CITRATE. [Concomitant]
     Active Substance: FENTANYL CITRATE
     Indication: PREMEDICATION
     Dosage: 2 ?G/KG, UNK
     Route: 051

REACTIONS (11)
  - Sputum discoloured [Recovered/Resolved]
  - Dyspnoea [Recovered/Resolved]
  - Tachypnoea [Recovered/Resolved]
  - Respiratory distress [Recovered/Resolved]
  - Skin discolouration [Recovered/Resolved]
  - Pulmonary oedema [Recovered/Resolved]
  - Laryngospasm [Recovered/Resolved]
  - Flail chest [Recovered/Resolved]
  - Upper airway obstruction [Recovered/Resolved]
  - Oxygen saturation decreased [Recovered/Resolved]
  - Crepitations [Recovered/Resolved]
